FAERS Safety Report 14941519 (Version 1)
Quarter: 2018Q2

REPORT INFORMATION
  Report Type: Spontaneous
  Country: US (occurrence: US)
  Receive Date: 20180526
  Receipt Date: 20180526
  Transmission Date: 20180711
  Serious: No
  Sender: FDA-Public Use
  Company Number: US-TEVA-2018-US-895319

PATIENT
  Sex: Female

DRUGS (2)
  1. NICOTINE. [Concomitant]
     Active Substance: NICOTINE
     Dates: start: 20180509
  2. NICOTINE. [Suspect]
     Active Substance: NICOTINE
     Route: 065

REACTIONS (2)
  - Wrong technique in product usage process [Unknown]
  - Product taste abnormal [Unknown]
